FAERS Safety Report 8858723 (Version 1)
Quarter: 2012Q4

REPORT INFORMATION
  Report Type: Spontaneous
  Country: US (occurrence: None)
  Receive Date: 20121023
  Receipt Date: 20121023
  Transmission Date: 20130627
  Serious: No
  Sender: FDA-Public Use
  Company Number: None

PATIENT
  Age: 59 Year
  Sex: Female

DRUGS (1)
  1. ESTROGEL [Suspect]
     Dosage: applied daily

REACTIONS (2)
  - Device malfunction [None]
  - Incorrect dose administered by device [None]
